FAERS Safety Report 5319906-4 (Version None)
Quarter: 2007Q2

REPORT INFORMATION
  Report Type: 
  Country: None (occurrence: None)
  Receive Date: 20070503
  Receipt Date: 20070418
  Transmission Date: 20071010
  Serious: Yes (Congenital Anomaly)
  Sender: FDA-Public Use
  Company Number: 8019233

PATIENT
  Sex: Female

DRUGS (8)
  1. KEPPRA [Suspect]
     Dosage: 2000 MG 2/D TRP
     Dates: start: 20060301, end: 20061124
  2. PRENATAL VITAMINS [Concomitant]
  3. ALBUTEROL [Concomitant]
  4. PHENYTOIN [Concomitant]
  5. VALPROATE SODIUM [Concomitant]
  6. VISTARIL [Concomitant]
  7. ZOLOFT [Concomitant]
  8. ZYRTEC [Concomitant]

REACTIONS (3)
  - CLEFT LIP [None]
  - CLEFT PALATE [None]
  - DRUG EXPOSURE DURING PREGNANCY [None]
